FAERS Safety Report 5595944-1 (Version None)
Quarter: 2008Q1

REPORT INFORMATION
  Report Type: 
  Country: None (occurrence: None)
  Receive Date: 20080118
  Receipt Date: 20080103
  Transmission Date: 20080703
  Serious: Yes (Hospitalization)
  Sender: FDA-Public Use
  Company Number: US-ELI_LILLY_AND_COMPANY-US200712003696

PATIENT
  Sex: Female
  Weight: 67.12 kg

DRUGS (19)
  1. TERIPARATIDE [Suspect]
     Indication: OSTEOPOROSIS
     Dosage: 20 UG, DAILY (1/D)
     Route: 058
     Dates: start: 20060727
  2. PROZAC [Concomitant]
     Indication: DEPRESSION
  3. CYMBALTA [Concomitant]
     Indication: DEPRESSION
  4. LASIX [Concomitant]
     Indication: CARDIAC FAILURE CONGESTIVE
  5. POTASSIUM CHLORIDE [Concomitant]
     Indication: SUPPLEMENTATION THERAPY
  6. LEVOTHYROXINE SODIUM [Concomitant]
     Indication: HYPOTHYROIDISM
  7. BENICAR [Concomitant]
     Indication: HYPERTENSION
  8. ALBUTEROL [Concomitant]
     Indication: ASTHMA
  9. ADVAIR DISKUS 100/50 [Concomitant]
     Indication: ASTHMA
  10. NEXIUM [Concomitant]
     Indication: GASTROOESOPHAGEAL REFLUX DISEASE
  11. COUMADIN [Concomitant]
     Indication: DEEP VEIN THROMBOSIS
     Dates: start: 20060601
  12. CALCIUM GLUCONATE [Concomitant]
     Indication: OSTEOPOROSIS
     Dates: start: 20060615
  13. HYDROCODONE [Concomitant]
     Indication: BACK PAIN
     Dates: start: 20061201
  14. ALEVE [Concomitant]
     Indication: PAIN
     Dates: start: 20070601
  15. LIDODERM [Concomitant]
     Indication: BACK PAIN
     Dates: start: 20070301
  16. OXYCODONE [Concomitant]
     Indication: BACK PAIN
     Dates: start: 20070701
  17. CLONIDINE [Concomitant]
     Indication: HYPERTENSION
     Dates: start: 20071001
  18. PROBENECID [Concomitant]
     Indication: GOUT
     Dates: start: 20071001
  19. MS CONTIN [Concomitant]
     Indication: BACK PAIN

REACTIONS (1)
  - CELLULITIS [None]
